FAERS Safety Report 16810088 (Version 2)
Quarter: 2019Q4

REPORT INFORMATION
  Report Type: Spontaneous
  Country: DE (occurrence: DE)
  Receive Date: 20190916
  Receipt Date: 20191001
  Transmission Date: 20200122
  Serious: Yes (Other)
  Sender: FDA-Public Use
  Company Number: DE-GLENMARK PHARMACEUTICALS-2019GMK043111

PATIENT

DRUGS (4)
  1. TOPIRAMAT GLENMARK 25MG FILMTABLETTEN [Suspect]
     Active Substance: TOPIRAMATE
     Indication: MIGRAINE PROPHYLAXIS
     Dosage: 25 MG, OD (1 TABLET IN THE EVENING FOR THE FIRST 2 DAYS)
     Route: 048
     Dates: start: 2019, end: 2019
  2. TOPIRAMAT GLENMARK 25MG FILMTABLETTEN [Suspect]
     Active Substance: TOPIRAMATE
     Dosage: 25 MG, OD (ONE TABLET PER DAY IN THE EVENING)
     Route: 048
     Dates: start: 2019
  3. L-THYROXINE                        /00068001/ [Concomitant]
     Active Substance: LEVOTHYROXINE
     Indication: HYPOTHYROIDISM
     Dosage: A FEW YEARS AGO (EXACT DATE UNKNOWN)
     Route: 065
  4. TOPIRAMAT GLENMARK 25MG FILMTABLETTEN [Suspect]
     Active Substance: TOPIRAMATE
     Dosage: 12.5 MG, OD (HALF OF ONE TABLET IN THE EVENING AFTER THAT)
     Route: 048
     Dates: start: 2019, end: 2019

REACTIONS (4)
  - Loss of personal independence in daily activities [Recovering/Resolving]
  - Fatigue [Recovering/Resolving]
  - Intentional product use issue [Unknown]
  - Disturbance in attention [Recovering/Resolving]

NARRATIVE: CASE EVENT DATE: 2019
